FAERS Safety Report 9293620 (Version 1)
Quarter: 2013Q2

REPORT INFORMATION
  Report Type: Spontaneous
  Country: US (occurrence: US)
  Receive Date: 20130516
  Receipt Date: 20130516
  Transmission Date: 20140414
  Serious: No
  Sender: FDA-Public Use
  Company Number: US-BANPHARM-20120049

PATIENT
  Age: 61 Year
  Sex: Female
  Weight: 91 kg

DRUGS (1)
  1. IBUPROFEN CAPSULES 200 MG [Suspect]
     Indication: JOINT INJURY
     Dosage: 200MG, ONCE, ORALLY
     Route: 048
     Dates: start: 20120724, end: 20120725

REACTIONS (1)
  - Abdominal pain upper [Recovered/Resolved]
